FAERS Safety Report 12238302 (Version 2)
Quarter: 2016Q3

REPORT INFORMATION
  Report Type: Report from Study
  Country: US (occurrence: US)
  Receive Date: 20160405
  Receipt Date: 20160712
  Transmission Date: 20161109
  Serious: Yes (Death, Hospitalization)
  Sender: FDA-Public Use
  Company Number: US-BAYER-2016-053213

PATIENT
  Age: 75 Year
  Sex: Female
  Weight: 48.98 kg

DRUGS (4)
  1. ADEMPAS [Suspect]
     Active Substance: RIOCIGUAT
     Indication: PULMONARY HYPERTENSION
     Dosage: UNK
     Dates: start: 20151026
  2. ADEMPAS [Suspect]
     Active Substance: RIOCIGUAT
     Indication: PULMONARY HYPERTENSION
     Dosage: 2.5 MG, TID
     Route: 048
  3. VELETRI [Suspect]
     Active Substance: EPOPROSTENOL
  4. TYVASO [Concomitant]
     Active Substance: TREPROSTINIL
     Dosage: UNK

REACTIONS (5)
  - Drug intolerance [Unknown]
  - Death [Fatal]
  - Pulmonary hypertension [Not Recovered/Not Resolved]
  - Malaise [Unknown]
  - Fluid retention [Unknown]

NARRATIVE: CASE EVENT DATE: 20160326
